FAERS Safety Report 6151276-4 (Version None)
Quarter: 2009Q2

REPORT INFORMATION
  Report Type: 
  Country: None (occurrence: None)
  Receive Date: 20090408
  Receipt Date: 20090320
  Transmission Date: 20091009
  Serious: Yes (Hospitalization)
  Sender: FDA-Public Use
  Company Number: PVS15-20-MAR-2009

PATIENT
  Age: 41 Year
  Sex: Female

DRUGS (7)
  1. SEROMYCIN [Suspect]
     Indication: PULMONARY TUBERCULOSIS
     Dosage: 750 MG DAILY, 1/D, ORAL
     Route: 048
     Dates: start: 20080414, end: 20080423
  2. ETHIONAMIDE (ETHIONAMIDE) [Concomitant]
  3. OFLOXACIN (OFLOXACIN) [Concomitant]
  4. PYRAZINAMDE (PYRAZINAMIDE) [Concomitant]
  5. ETHAMBUTOL HCL [Concomitant]
  6. CAPREOMYCIN (CAPREOMYCIN) [Concomitant]
  7. PAS (PARA-AMINOSALICYLIC ACID) [Concomitant]

REACTIONS (2)
  - CONFUSIONAL STATE [None]
  - PSYCHOTIC DISORDER [None]
